FAERS Safety Report 19897454 (Version 2)
Quarter: 2024Q4

REPORT INFORMATION
  Report Type: Spontaneous
  Country: US (occurrence: US)
  Receive Date: 20210930
  Receipt Date: 20241205
  Transmission Date: 20250115
  Serious: Yes (Hospitalization, Other)
  Sender: SANOFI AVENTIS
  Company Number: US-SA-SAC20210928000824

PATIENT
  Age: 52 Year
  Sex: Female
  Weight: 103.41 kg

DRUGS (1)
  1. DUPIXENT [Suspect]
     Active Substance: DUPILUMAB
     Indication: Illness
     Dosage: 300 MG, QOW
     Route: 058

REACTIONS (4)
  - Thrombosis [Unknown]
  - COVID-19 [Unknown]
  - Tremor [Unknown]
  - Surgery [Unknown]

NARRATIVE: CASE EVENT DATE: 20210101
